FAERS Safety Report 10409319 (Version 1)
Quarter: 2014Q1

REPORT INFORMATION
  Report Type: Spontaneous
  Country: US (occurrence: None)
  Receive Date: 20140131
  Receipt Date: 20140131
  Transmission Date: 20141002
  Serious: Yes (Other)
  Sender: FDA-Public Use
  Company Number: 101792U

PATIENT
  Sex: 0

DRUGS (4)
  1. KEPPRA [Suspect]
     Dosage: UNKNOWN DOSE
  2. C-VITAMIN [Concomitant]
  3. ZINC [Suspect]
  4. VITAMIN B12 [Concomitant]

REACTIONS (2)
  - Convulsion [None]
  - Aggression [None]
